FAERS Safety Report 8414363-3 (Version None)
Quarter: 2012Q2

REPORT INFORMATION
  Report Type: 
  Country: None (occurrence: None)
  Receive Date: 20120605
  Receipt Date: 20120529
  Transmission Date: 20120825
  Serious: Yes (Other)
  Sender: FDA-Public Use
  Company Number: US-TEVA-340416USA

PATIENT
  Sex: Female
  Weight: 54.48 kg

DRUGS (4)
  1. FLUTICASONE PROPIONATE [Concomitant]
     Indication: ASTHMA
  2. LEVOTHYROXINE SODIUM [Concomitant]
     Indication: HYPOTHYROIDISM
  3. PREDNISONE [Concomitant]
     Indication: ASTHMA
  4. PROAIR HFA [Suspect]
     Indication: ASTHMA
     Route: 055
     Dates: start: 20110101

REACTIONS (3)
  - BRONCHOSPASM PARADOXICAL [None]
  - BRONCHITIS [None]
  - DIZZINESS [None]
